FAERS Safety Report 25788350 (Version 1)
Quarter: 2025Q3

REPORT INFORMATION
  Report Type: Spontaneous
  Country: US (occurrence: US)
  Receive Date: 20250910
  Receipt Date: 20250910
  Transmission Date: 20251020
  Serious: Yes (Death, Hospitalization, Other)
  Sender: GRIFOLS
  Company Number: US-IGSA-BIG0037718

PATIENT
  Age: 69 Year
  Sex: Male

DRUGS (3)
  1. HUMAN IMMUNOGLOBULIN G [Suspect]
     Active Substance: HUMAN IMMUNOGLOBULIN G
     Indication: Product used for unknown indication
     Route: 065
  2. NOREPINEPHRINE [Concomitant]
     Active Substance: NOREPINEPHRINE
  3. BACTRIM [Concomitant]
     Active Substance: SULFAMETHOXAZOLE\TRIMETHOPRIM

REACTIONS (10)
  - Acute kidney injury [Fatal]
  - Hypotension [Fatal]
  - Klebsiella urinary tract infection [Fatal]
  - Asthenia [Fatal]
  - Facial paralysis [Fatal]
  - Ophthalmoplegia [Fatal]
  - Corneal reflex decreased [Fatal]
  - Quadriplegia [Fatal]
  - Bradycardia [Fatal]
  - Ventricular tachycardia [Fatal]
